FAERS Safety Report 24839089 (Version 1)
Quarter: 2025Q1

REPORT INFORMATION
  Report Type: Spontaneous
  Country: US (occurrence: US)
  Receive Date: 20250114
  Receipt Date: 20250114
  Transmission Date: 20250408
  Serious: No
  Sender: VIIV
  Company Number: US-VIIV HEALTHCARE-US2025003087

PATIENT
  Sex: Male

DRUGS (2)
  1. VOCABRIA [Suspect]
     Active Substance: CABOTEGRAVIR SODIUM
     Indication: Product used for unknown indication
  2. EDURANT [Suspect]
     Active Substance: RILPIVIRINE HYDROCHLORIDE
     Indication: Product used for unknown indication

REACTIONS (2)
  - Fatigue [Unknown]
  - Somnolence [Unknown]
